FAERS Safety Report 5252288-5 (Version None)
Quarter: 2007Q1

REPORT INFORMATION
  Report Type: 
  Country: None (occurrence: None)
  Receive Date: 20070301
  Receipt Date: 20060110
  Transmission Date: 20070707
  Serious: No
  Sender: FDA-Public Use
  Company Number: US-BRISTOL-MYERS SQUIBB COMPANY-13227491

PATIENT
  Age: 57 Year
  Sex: Female
  Weight: 95 kg

DRUGS (8)
  1. TAXOL [Suspect]
     Indication: BREAST CANCER
     Route: 042
     Dates: start: 20060109, end: 20060109
  2. BENADRYL [Concomitant]
     Indication: PREMEDICATION
     Route: 042
     Dates: start: 20051219, end: 20051219
  3. DECADRON [Concomitant]
     Route: 042
     Dates: start: 20051219, end: 20051219
  4. ALTACE [Concomitant]
  5. NAPROXEN [Concomitant]
  6. SULAR [Concomitant]
  7. AVALIDE [Concomitant]
  8. MAGNESIUM OXIDE [Concomitant]

REACTIONS (5)
  - BONE PAIN [None]
  - HYPOAESTHESIA [None]
  - PAIN IN EXTREMITY [None]
  - PARAESTHESIA [None]
  - PELVIC PAIN [None]
